FAERS Safety Report 11857062 (Version 4)
Quarter: 2016Q1

REPORT INFORMATION
  Report Type: Report from Study
  Country: TW (occurrence: TW)
  Receive Date: 20151221
  Receipt Date: 20160118
  Transmission Date: 20160526
  Serious: Yes (Hospitalization)
  Sender: FDA-Public Use
  Company Number: TW-JNJFOC-20151211387

PATIENT
  Age: 58 Year
  Sex: Male
  Weight: 56 kg

DRUGS (14)
  1. SIMPONI [Suspect]
     Active Substance: GOLIMUMAB
     Indication: ANKYLOSING SPONDYLITIS
     Route: 058
     Dates: start: 20140518, end: 20151002
  2. ULTRACET [Concomitant]
     Active Substance: ACETAMINOPHEN\TRAMADOL HYDROCHLORIDE
     Indication: ANKYLOSING SPONDYLITIS
     Dosage: FREQUENCY: AS NEEDED
     Route: 048
     Dates: start: 20141007, end: 20151116
  3. CONCOR [Concomitant]
     Active Substance: BISOPROLOL FUMARATE
     Indication: HYPERTENSION
     Route: 048
     Dates: start: 20091014, end: 20151216
  4. PITAVASTATIN [Concomitant]
     Active Substance: PITAVASTATIN
     Indication: HYPERLIPIDAEMIA
     Route: 048
     Dates: start: 20150522, end: 20151216
  5. SULFASALAZINE. [Concomitant]
     Active Substance: SULFASALAZINE
     Indication: ANKYLOSING SPONDYLITIS
     Route: 048
     Dates: start: 20140318, end: 20151116
  6. TELMISARTAN. [Concomitant]
     Active Substance: TELMISARTAN
     Indication: HYPERTENSION
     Dosage: 80/5MG
     Route: 048
     Dates: start: 20150821, end: 20151216
  7. SOMA [Concomitant]
     Active Substance: CARISOPRODOL
     Indication: ANKYLOSING SPONDYLITIS
     Dosage: 250/150/20/7.7 EVERY OTHER DAY.
     Route: 048
     Dates: start: 20090926, end: 20151116
  8. SULFASALAZINE. [Concomitant]
     Active Substance: SULFASALAZINE
     Indication: ANKYLOSING SPONDYLITIS
     Route: 048
     Dates: start: 20090926, end: 20140317
  9. PITAVASTATIN [Concomitant]
     Active Substance: PITAVASTATIN
     Indication: BLOOD CHOLESTEROL INCREASED
     Route: 048
     Dates: start: 20150522, end: 20151216
  10. BROTIZOLAM [Concomitant]
     Active Substance: BROTIZOLAM
     Indication: INSOMNIA
     Route: 048
     Dates: start: 20150821, end: 20151216
  11. ASPIRIN. [Concomitant]
     Active Substance: ASPIRIN
     Indication: THROMBOSIS PROPHYLAXIS
     Route: 048
     Dates: start: 20060722, end: 20151216
  12. ETORICOXIB [Concomitant]
     Active Substance: ETORICOXIB
     Indication: ANKYLOSING SPONDYLITIS
     Route: 048
     Dates: start: 20131011, end: 20151116
  13. RANITIDINE [Concomitant]
     Active Substance: RANITIDINE\RANITIDINE HYDROCHLORIDE
     Indication: GASTROOESOPHAGEAL REFLUX DISEASE
     Route: 048
     Dates: start: 20100611, end: 20151116
  14. RANITIDINE [Concomitant]
     Active Substance: RANITIDINE\RANITIDINE HYDROCHLORIDE
     Indication: PEPTIC ULCER
     Route: 048
     Dates: start: 20100611, end: 20151116

REACTIONS (2)
  - Vision blurred [Not Recovered/Not Resolved]
  - Sinusitis [Recovered/Resolved]

NARRATIVE: CASE EVENT DATE: 2015
